FAERS Safety Report 13161828 (Version 6)
Quarter: 2017Q2

REPORT INFORMATION
  Report Type: Report from Study
  Country: US (occurrence: US)
  Receive Date: 20170130
  Receipt Date: 20170516
  Transmission Date: 20170830
  Serious: Yes (Hospitalization)
  Sender: FDA-Public Use
  Company Number: US-GILEAD-2017-0255041

PATIENT
  Age: 62 Year
  Sex: Female

DRUGS (4)
  1. REMODULIN [Suspect]
     Active Substance: TREPROSTINIL
     Indication: PRODUCT USED FOR UNKNOWN INDICATION
     Route: 065
  2. AMBRISENTAN [Suspect]
     Active Substance: AMBRISENTAN
     Indication: PULMONARY ARTERIAL HYPERTENSION
     Dosage: 10 MG, QD
     Route: 065
     Dates: start: 20170301
  3. ADCIRCA [Concomitant]
     Active Substance: TADALAFIL
  4. AMBRISENTAN [Suspect]
     Active Substance: AMBRISENTAN
     Indication: DRUG THERAPY

REACTIONS (6)
  - Dyspnoea [Recovered/Resolved]
  - Asthma [Recovered/Resolved]
  - Drug dose omission [Unknown]
  - Dyspnoea [Recovered/Resolved]
  - Fatigue [Unknown]
  - Catheter site pain [Recovered/Resolved]

NARRATIVE: CASE EVENT DATE: 20170307
